FAERS Safety Report 4280370-8 (Version None)
Quarter: 2004Q1

REPORT INFORMATION
  Report Type: 
  Country: None (occurrence: None)
  Receive Date: 20040123
  Receipt Date: 20040112
  Transmission Date: 20041129
  Serious: Yes (Other)
  Sender: FDA-Public Use
  Company Number: GB-JNJFOC-20040101907

PATIENT
  Age: 25 Year
  Sex: Female

DRUGS (1)
  1. HALDOL [Suspect]
     Indication: SEDATION
     Dosage: 0.5 MG, 3 IN 1 DAY

REACTIONS (5)
  - AGITATION [None]
  - CONVULSION [None]
  - DIFFICULTY IN WALKING [None]
  - SPEECH DISORDER [None]
  - TREMOR [None]
